FAERS Safety Report 17532494 (Version 2)
Quarter: 2020Q2

REPORT INFORMATION
  Report Type: Spontaneous
  Country: US (occurrence: US)
  Receive Date: 20200312
  Receipt Date: 20200421
  Transmission Date: 20200713
  Serious: No
  Sender: FDA-Public Use
  Company Number: US-009507513-2003USA001840

PATIENT
  Age: 22 Year
  Sex: Female
  Weight: 55.79 kg

DRUGS (1)
  1. ZINPLAVA [Suspect]
     Active Substance: BEZLOTOXUMAB
     Indication: CLOSTRIDIUM DIFFICILE COLITIS
     Dosage: 550 MILLIGRAM, ONCE
     Route: 042
     Dates: start: 20200219, end: 20200219

REACTIONS (5)
  - Cough [Recovered/Resolved with Sequelae]
  - Pallor [Recovered/Resolved]
  - Chest discomfort [Recovered/Resolved with Sequelae]
  - Rash [Recovered/Resolved]
  - Dyspnoea [Recovered/Resolved]

NARRATIVE: CASE EVENT DATE: 20200219
